FAERS Safety Report 5262132-8 (Version None)
Quarter: 2007Q1

REPORT INFORMATION
  Report Type: 
  Country: None (occurrence: None)
  Receive Date: 20070311
  Receipt Date: 20070228
  Transmission Date: 20070707
  Serious: Yes (Other)
  Sender: FDA-Public Use
  Company Number: 2007UW02275

PATIENT
  Age: 26 Year
  Sex: Female
  Weight: 77.3 kg

DRUGS (9)
  1. SEROQUEL [Suspect]
     Indication: SCHIZOPHRENIA
     Route: 048
     Dates: start: 20020405, end: 20020901
  2. SEROQUEL [Suspect]
     Indication: BIPOLAR DISORDER
     Route: 048
     Dates: start: 20020405, end: 20020901
  3. SEROQUEL [Suspect]
     Dosage: 25 - 200 MG
     Route: 048
     Dates: start: 20040607, end: 20050401
  4. SEROQUEL [Suspect]
     Dosage: 25 - 200 MG
     Route: 048
     Dates: start: 20040607, end: 20050401
  5. RISPERDAL [Suspect]
     Indication: SCHIZOPHRENIA
     Dates: start: 20041123, end: 20041222
  6. ABILIFY [Concomitant]
     Dates: start: 20050815, end: 20051001
  7. LITHIUM CARBONATE [Concomitant]
  8. DEPAKOTE [Concomitant]
     Dates: start: 20041123
  9. DEPAKOTE [Concomitant]
     Dates: start: 20050701, end: 20050901

REACTIONS (2)
  - DIABETES MELLITUS NON-INSULIN-DEPENDENT [None]
  - HEPATITIS C [None]
